FAERS Safety Report 7659451-4 (Version None)
Quarter: 2011Q3

REPORT INFORMATION
  Report Type: 
  Country: None (occurrence: None)
  Receive Date: 20110805
  Receipt Date: 20110729
  Transmission Date: 20111222
  Serious: Yes (Hospitalization)
  Sender: FDA-Public Use
  Company Number: IT-JNJFOC-20110800194

PATIENT
  Sex: Female

DRUGS (4)
  1. ACETAMINOPHEN [Concomitant]
     Route: 065
  2. TENSOZIDE [Concomitant]
     Indication: HYPERTENSION
     Route: 048
  3. DEPALGOS [Suspect]
     Indication: OSTEOARTHRITIS
     Route: 048
     Dates: start: 20110710, end: 20110715
  4. DURAGESIC-100 [Suspect]
     Indication: OSTEOARTHRITIS
     Route: 062
     Dates: start: 20110509, end: 20110708

REACTIONS (3)
  - BRADYKINESIA [None]
  - BRADYPHRENIA [None]
  - SOPOR [None]
